FAERS Safety Report 10258602 (Version 1)
Quarter: 2014Q2

REPORT INFORMATION
  Report Type: Spontaneous
  Country: US (occurrence: None)
  Receive Date: 20140624
  Receipt Date: 20140624
  Transmission Date: 20141212
  Serious: Yes (Other)
  Sender: FDA-Public Use
  Company Number: None

PATIENT
  Age: 39 Year
  Sex: Male
  Weight: 109 kg

DRUGS (1)
  1. MULTIHANCE [Suspect]
     Indication: SCAN WITH CONTRAST
     Route: 042
     Dates: start: 20140612

REACTIONS (2)
  - Throat irritation [None]
  - Cough [None]
